FAERS Safety Report 17849948 (Version 1)
Quarter: 2020Q2

REPORT INFORMATION
  Report Type: Spontaneous
  Country: US (occurrence: US)
  Receive Date: 20200602
  Receipt Date: 20200602
  Transmission Date: 20200714
  Serious: No
  Sender: FDA-Public Use
  Company Number: US-009507513-2005USA010069

PATIENT
  Age: 33 Year
  Sex: Male

DRUGS (2)
  1. ALBUTEROL SULFATE. [Suspect]
     Active Substance: ALBUTEROL SULFATE
     Indication: ASTHMA
     Dosage: DOSE: 108 MICROGRAM
  2. ALBUTEROL SULFATE. [Suspect]
     Active Substance: ALBUTEROL SULFATE
     Dosage: DOSE: 108 MICROGRAM

REACTIONS (3)
  - Product dose omission [Unknown]
  - Poor quality device used [Unknown]
  - Product quality issue [Unknown]
